FAERS Safety Report 4370125-8 (Version None)
Quarter: 2004Q2

REPORT INFORMATION
  Report Type: 
  Country: None (occurrence: None)
  Receive Date: 20040527
  Receipt Date: 20040520
  Transmission Date: 20050107
  Serious: Yes (Hospitalization)
  Sender: FDA-Public Use
  Company Number: 200410343BNE

PATIENT
  Age: 73 Year
  Sex: Male

DRUGS (7)
  1. ASPIRIN [Suspect]
     Dosage: 75 MG, TOTAL DAILY, ORAL
     Route: 048
  2. IBUPROFEN [Suspect]
     Indication: MUSCULOSKELETAL PAIN
     Dosage: 400 MG, TID,  ORAL
     Route: 048
     Dates: start: 20040505
  3. DICLOFENAC SODIUM [Suspect]
     Dosage: 150 MG, TOTAL DAILY, ORAL
     Route: 048
     Dates: start: 20040505
  4. AMLODIPINE [Concomitant]
  5. BENDROFLUAZIDE [Concomitant]
  6. NOVOMIX [Concomitant]
  7. METFORMIN [Concomitant]

REACTIONS (4)
  - GASTROINTESTINAL HAEMORRHAGE [None]
  - HAEMATEMESIS [None]
  - MUSCULOSKELETAL PAIN [None]
  - OESOPHAGEAL ULCER [None]
